FAERS Safety Report 26207046 (Version 2)
Quarter: 2025Q4

REPORT INFORMATION
  Report Type: Spontaneous
  Country: US (occurrence: US)
  Receive Date: 20251229
  Receipt Date: 20251229
  Transmission Date: 20260117
  Serious: Yes (Other)
  Sender: ROCHE
  Company Number: US-ROCHE-10000464853

PATIENT

DRUGS (5)
  1. CELLCEPT [Suspect]
     Active Substance: MYCOPHENOLATE MOFETIL
     Indication: Systemic lupus erythematosus
  2. CYCLOPHOSPHAMIDE [Concomitant]
     Active Substance: CYCLOPHOSPHAMIDE
  3. METHOTREXATE [Concomitant]
     Active Substance: METHOTREXATE
  4. REMDESIVIR [Concomitant]
     Active Substance: REMDESIVIR
  5. DEXAMETHASONE [Concomitant]
     Active Substance: DEXAMETHASONE

REACTIONS (12)
  - Pulmonary vasculitis [Unknown]
  - Interstitial lung disease [Unknown]
  - Illness [Unknown]
  - Juvenile idiopathic arthritis [Unknown]
  - Asthma [Unknown]
  - COVID-19 [Unknown]
  - Anxiety [Unknown]
  - Blood test abnormal [Unknown]
  - Red blood cell elliptocytes present [Unknown]
  - Metamyelocyte count [Unknown]
  - Myelocyte count increased [Unknown]
  - White blood cell count increased [Unknown]
